FAERS Safety Report 7491206-6 (Version None)
Quarter: 2011Q2

REPORT INFORMATION
  Report Type: 
  Country: None (occurrence: None)
  Receive Date: 20110518
  Receipt Date: 20110505
  Transmission Date: 20111010
  Serious: Yes (Hospitalization)
  Sender: FDA-Public Use
  Company Number: JPI-P-014933

PATIENT
  Age: 56 Year
  Sex: Female
  Weight: 65.7716 kg

DRUGS (3)
  1. XYREM [Suspect]
     Indication: CATAPLEXY
     Dosage: ORAL 9 GM (4.5 GM, 2 IN 1 D), ORAL
     Route: 048
     Dates: start: 20110401
  2. XYREM [Suspect]
     Indication: CATAPLEXY
     Dosage: ORAL 9 GM (4.5 GM, 2 IN 1 D), ORAL
     Route: 048
     Dates: start: 20100904
  3. XYREM [Suspect]
     Indication: CATAPLEXY
     Dosage: ORAL 9 GM (4.5 GM, 2 IN 1 D), ORAL
     Route: 048
     Dates: end: 20110401

REACTIONS (5)
  - RETCHING [None]
  - VOMITING [None]
  - CHRONIC OBSTRUCTIVE PULMONARY DISEASE [None]
  - NAUSEA [None]
  - PNEUMONIA [None]
